FAERS Safety Report 4711375-8 (Version None)
Quarter: 2005Q3

REPORT INFORMATION
  Report Type: 
  Country: None (occurrence: None)
  Receive Date: 20050711
  Receipt Date: 20050705
  Transmission Date: 20060218
  Serious: Yes (Hospitalization)
  Sender: FDA-Public Use
  Company Number: NO-MERCK-0507NOR00007

PATIENT
  Age: 49 Year
  Sex: Female
  Weight: 70 kg

DRUGS (7)
  1. VIOXX [Suspect]
     Indication: PROCEDURAL PAIN
     Route: 048
     Dates: start: 20040816, end: 20040921
  2. ACETAMINOPHEN [Concomitant]
     Indication: PROCEDURAL PAIN
     Route: 048
     Dates: start: 20040816, end: 20040921
  3. LEVOTHYROXINE SODIUM [Concomitant]
     Route: 048
  4. OMEGA-3 MARINE TRIGLYCERIDES [Concomitant]
     Route: 065
  5. VITAMINS (UNSPECIFIED) [Concomitant]
     Route: 065
  6. NUTRITIONAL SUPPLEMENTS [Concomitant]
     Route: 065
  7. DEXCHLORPHENIRAMINE MALEATE [Concomitant]
     Indication: SEASONAL ALLERGY
     Route: 065

REACTIONS (3)
  - PULMONARY EMBOLISM [None]
  - VAGINAL HAEMATOMA [None]
  - VENOUS THROMBOSIS [None]
